FAERS Safety Report 7756531-X (Version None)
Quarter: 2011Q3

REPORT INFORMATION
  Report Type: 
  Country: None (occurrence: None)
  Receive Date: 20110916
  Receipt Date: 20110912
  Transmission Date: 20111222
  Serious: Yes (Other)
  Sender: FDA-Public Use
  Company Number: CHPA2011US10351

PATIENT
  Age: 60 Year
  Sex: Female

DRUGS (1)
  1. BENEFIBER STICK PACKS [Suspect]
     Indication: CONSTIPATION
     Dosage: 1-2 STICK PACKS PER DAY
     Route: 048
     Dates: start: 20110802, end: 20110803

REACTIONS (3)
  - OFF LABEL USE [None]
  - BLOOD GLUCOSE INCREASED [None]
  - EXPIRED DRUG ADMINISTERED [None]
